FAERS Safety Report 6691826-2 (Version None)
Quarter: 2010Q2

REPORT INFORMATION
  Report Type: 
  Country: None (occurrence: None)
  Receive Date: 20100422
  Receipt Date: 20100409
  Transmission Date: 20101027
  Serious: Yes (Hospitalization, Other)
  Sender: FDA-Public Use
  Company Number: PHHY2010JP08062

PATIENT
  Sex: Male
  Weight: 58 kg

DRUGS (3)
  1. VOLTAREN [Suspect]
     Indication: PYREXIA
     Dosage: 50 MG, UNK
     Route: 054
     Dates: start: 20100118, end: 20100128
  2. CALBLOCK [Concomitant]
     Dosage: 16 MG, UNK
     Route: 048
  3. CANDESARTAN CILEXETIL [Concomitant]
     Dosage: 8 MG, UNK
     Route: 048

REACTIONS (13)
  - BLOOD CREATININE DECREASED [None]
  - DRUG TOXICITY [None]
  - EOSINOPHIL PERCENTAGE INCREASED [None]
  - HAEMATOCRIT DECREASED [None]
  - HAEMOGLOBIN DECREASED [None]
  - HEPATITIS ACUTE [None]
  - LIVER DISORDER [None]
  - MALAISE [None]
  - MONOCYTE PERCENTAGE INCREASED [None]
  - PLATELET COUNT DECREASED [None]
  - PROTHROMBIN TIME SHORTENED [None]
  - PYREXIA [None]
  - RED BLOOD CELL COUNT DECREASED [None]
